FAERS Safety Report 24760132 (Version 1)
Quarter: 2024Q4

REPORT INFORMATION
  Report Type: Spontaneous
  Country: US (occurrence: US)
  Receive Date: 20241220
  Receipt Date: 20241220
  Transmission Date: 20250114
  Serious: No
  Sender: JUBILANT
  Company Number: US-JUBILANT CADISTA PHARMACEUTICALS INC.-2024JUB00061

PATIENT
  Sex: Female

DRUGS (3)
  1. METHYLPREDNISOLONE [Suspect]
     Active Substance: METHYLPREDNISOLONE
     Indication: Cellulitis
  2. IBRANCE [Concomitant]
     Active Substance: PALBOCICLIB
     Dosage: 125 MG, 1X/DAY, FOR 3 WEEKS ON, THEN 1 WEEK OFF
  3. ANASTROZOLE [Concomitant]
     Active Substance: ANASTROZOLE
     Dosage: 1 MG, 1X/DAY

REACTIONS (1)
  - Blood glucose increased [Unknown]
